FAERS Safety Report 19849946 (Version 1)
Quarter: 2021Q3

REPORT INFORMATION
  Report Type: Spontaneous
  Country: DE (occurrence: DE)
  Receive Date: 20210917
  Receipt Date: 20210917
  Transmission Date: 20211014
  Serious: Yes (Hospitalization, Other)
  Sender: FDA-Public Use
  Company Number: DE-ANIPHARMA-2021-DE-000200

PATIENT
  Age: 60 Year
  Sex: Female
  Weight: 70 kg

DRUGS (8)
  1. TORASEMID [Suspect]
     Active Substance: TORSEMIDE
     Dosage: 10 MG QD
     Route: 065
  2. CHLORTALIDONE [Suspect]
     Active Substance: CHLORTHALIDONE
     Dosage: 25 MG QD
     Route: 065
  3. METAMIZOL [Concomitant]
     Active Substance: METAMIZOLE SODIUM
     Dosage: 500 MG TID
     Route: 065
  4. OXERUTINS [Concomitant]
     Route: 065
  5. CANDESARTAN CILEXETIL. [Suspect]
     Active Substance: CANDESARTAN CILEXETIL
     Indication: PRODUCT USED FOR UNKNOWN INDICATION
     Dosage: 16 MG QD
     Route: 065
  6. FENTANYL. [Concomitant]
     Active Substance: FENTANYL
     Dosage: 50 UG UNK
     Route: 065
  7. METOCLOPRAMID [Concomitant]
     Active Substance: METOCLOPRAMIDE
     Dosage: 10 MG TID
     Route: 065
  8. ACETYLSALICYLSAEURE [Suspect]
     Active Substance: ASPIRIN
     Dosage: 100 MG QD
     Route: 065

REACTIONS (12)
  - Systemic infection [Unknown]
  - Pain in extremity [Unknown]
  - General physical health deterioration [Unknown]
  - Muscular weakness [Unknown]
  - Sepsis [Unknown]
  - Hyperkalaemia [Unknown]
  - Hypotension [Unknown]
  - Hypothermia [Unknown]
  - Pallor [Unknown]
  - Anaemia [Unknown]
  - Ulcer [Unknown]
  - Renal impairment [Unknown]
